FAERS Safety Report 9258486 (Version 1)
Quarter: 2013Q1

REPORT INFORMATION
  Report Type: Spontaneous
  Country: US (occurrence: None)
  Receive Date: 20121212
  Receipt Date: 20121212
  Transmission Date: 20140127
  Serious: No
  Sender: FDA-Public Use
  Company Number: 1208USA009694

PATIENT
  Age: 73 Year
  Sex: Female

DRUGS (3)
  1. REBETOL [Suspect]
     Indication: HEPATITIS C
     Dosage: UNK, ORAL)
     Route: 048
     Dates: start: 20120802
  2. VICTRELIS [Suspect]
     Indication: HEPATITIS C
     Dosage: UNK
     Dates: start: 20120830
  3. PEGASYS (PEGINTERGERON ALFA-2A) [Concomitant]
     Dates: start: 20120802

REACTIONS (4)
  - Pain in extremity [None]
  - Depression [None]
  - Asthenia [None]
  - Fatigue [None]
